FAERS Safety Report 7053632-9 (Version None)
Quarter: 2010Q4

REPORT INFORMATION
  Report Type: 
  Country: None (occurrence: None)
  Receive Date: 20101020
  Receipt Date: 20101014
  Transmission Date: 20110411
  Serious: Yes (Other)
  Sender: FDA-Public Use
  Company Number: US-BAYER-201021766BCC

PATIENT
  Age: 86 Year
  Sex: Male

DRUGS (1)
  1. ALKA-SELTZER [Suspect]
     Indication: DYSPEPSIA
     Route: 048

REACTIONS (1)
  - HAEMORRHAGIC STROKE [None]
